FAERS Safety Report 24415859 (Version 1)
Quarter: 2024Q4

REPORT INFORMATION
  Report Type: Report from Study
  Country: CO (occurrence: CO)
  Receive Date: 20241009
  Receipt Date: 20241009
  Transmission Date: 20250115
  Serious: Yes (Other)
  Sender: ROCHE
  Company Number: CO-ROCHE-10000099387

PATIENT
  Sex: Female
  Weight: 62 kg

DRUGS (2)
  1. PERTUZUMAB\TRASTUZUMAB [Suspect]
     Active Substance: PERTUZUMAB\TRASTUZUMAB
     Indication: Breast cancer metastatic
     Dosage: DOSE WAS NOT REPORTED. 6 CYCLES
     Route: 042
     Dates: start: 202008, end: 202405
  2. DOCETAXEL [Concomitant]
     Active Substance: DOCETAXEL
     Indication: Breast cancer metastatic
     Dosage: DOSE WAS NOT REPORTED. 6 CYCLES
     Route: 042
     Dates: start: 202008, end: 202405

REACTIONS (2)
  - Disease progression [Unknown]
  - Ill-defined disorder [Unknown]

NARRATIVE: CASE EVENT DATE: 20240501
